FAERS Safety Report 7457599-0 (Version None)
Quarter: 2011Q2

REPORT INFORMATION
  Report Type: 
  Country: None (occurrence: None)
  Receive Date: 20110504
  Receipt Date: 20110425
  Transmission Date: 20111010
  Serious: Yes (Hospitalization, Congenital Anomaly, Other)
  Sender: FDA-Public Use
  Company Number: US-AMGEN-US271206

PATIENT
  Sex: Female
  Weight: 2.67 kg

DRUGS (16)
  1. TUMS [Concomitant]
     Dosage: UNK UNK, UNK
     Route: 064
     Dates: start: 20061119, end: 20070808
  2. IRON [Concomitant]
     Dosage: UNK UNK, QD
     Route: 064
     Dates: start: 20070616, end: 20070808
  3. LOVAZA [Concomitant]
     Dosage: UNK UNK, QD
     Route: 064
     Dates: start: 20061118, end: 20061215
  4. MAALOX [Concomitant]
     Dosage: UNK UNK, UNK
     Route: 064
     Dates: start: 20070625, end: 20070828
  5. IMMUNOGLOBULIN HUMAN ANTI-RH [Concomitant]
     Dosage: UNK UNK, UNK
     Route: 064
     Dates: start: 20070603, end: 20070603
  6. IBUPROFEN [Concomitant]
     Dosage: UNK UNK, UNK
     Route: 064
     Dates: start: 20070205, end: 20070603
  7. IBUPROFEN [Concomitant]
     Dosage: UNK UNK, BID
     Route: 064
     Dates: start: 20070129, end: 20070129
  8. BUTALBITAL [Concomitant]
     Dosage: 40 MG, UNK
     Route: 064
     Dates: start: 20070512, end: 20070520
  9. ETANERCEPT [Suspect]
     Indication: RHEUMATOID ARTHRITIS
     Dosage: 25 MG, 2 TIMES/WK
     Route: 058
     Dates: start: 20031101
  10. DIHYDROXYALUMINUM SODIUM CARBONATE [Concomitant]
     Dosage: UNK UNK, UNK
     Route: 064
     Dates: start: 20061119, end: 20070131
  11. TERBUTALINE [Concomitant]
     Dosage: UNK UNK, QD
     Route: 064
     Dates: start: 20070703, end: 20070703
  12. AFRIN [Concomitant]
     Dosage: UNK UNK, UNK
     Route: 045
  13. PRENATAL VITAMINS [Concomitant]
     Dosage: UNK UNK, QD
     Route: 064
     Dates: start: 20061119, end: 20070808
  14. DIHYDROXYALUMINUM SODIUM CARBONATE [Concomitant]
     Dosage: UNK UNK, QID
     Route: 064
     Dates: start: 20070616, end: 20070808
  15. CALCIUM [Concomitant]
     Dosage: UNK UNK, QD
     Route: 064
     Dates: start: 20061119, end: 20070808
  16. UNSPECIFIED INTRAVENOUS FLUIDS [Concomitant]
     Dosage: UNK UNK, UNK
     Route: 064
     Dates: start: 20070512, end: 20070512

REACTIONS (6)
  - PREMATURE BABY [None]
  - JAUNDICE [None]
  - ATRIAL SEPTAL DEFECT [None]
  - FEEDING DISORDER NEONATAL [None]
  - PATENT DUCTUS ARTERIOSUS [None]
  - VENTRICULAR SEPTAL DEFECT [None]
